FAERS Safety Report 23341431 (Version 2)
Quarter: 2024Q1

REPORT INFORMATION
  Report Type: Spontaneous
  Country: JP (occurrence: JP)
  Receive Date: 20231227
  Receipt Date: 20240129
  Transmission Date: 20240409
  Serious: Yes (Other)
  Sender: FDA-Public Use
  Company Number: JP-002147023-NVSJ2023JP017831

PATIENT
  Age: 71 Year
  Sex: Male

DRUGS (1)
  1. LUCENTIS [Suspect]
     Active Substance: RANIBIZUMAB
     Indication: Age-related macular degeneration
     Dosage: 0.5 MG
     Route: 050

REACTIONS (9)
  - Retinal pigment epithelial tear [Unknown]
  - Blindness unilateral [Unknown]
  - Loss of consciousness [Recovered/Resolved]
  - Age-related macular degeneration [Unknown]
  - Retinal haemorrhage [Unknown]
  - Fall [Unknown]
  - Contusion [Recovered/Resolved]
  - Retinal scar [Unknown]
  - Asthenia [Unknown]
